FAERS Safety Report 19175098 (Version 1)
Quarter: 2021Q2

REPORT INFORMATION
  Report Type: Report from Study
  Country: FR (occurrence: FR)
  Receive Date: 20210423
  Receipt Date: 20210423
  Transmission Date: 20210717
  Serious: Yes (Hospitalization)
  Sender: FDA-Public Use
  Company Number: FR-EMD SERONO-9232850

PATIENT
  Age: 73 Year
  Sex: Male
  Weight: 59 kg

DRUGS (5)
  1. REGORAFENIB. [Suspect]
     Active Substance: REGORAFENIB
     Indication: GASTROINTESTINAL CARCINOMA
     Route: 048
     Dates: start: 20210223
  2. METOCLOPRAMIDE. [Concomitant]
     Active Substance: METOCLOPRAMIDE
     Indication: DECREASED APPETITE
     Dates: start: 2010
  3. REGORAFENIB. [Suspect]
     Active Substance: REGORAFENIB
     Route: 048
     Dates: start: 20210406
  4. AVELUMAB [Suspect]
     Active Substance: AVELUMAB
     Route: 042
     Dates: start: 20210406
  5. AVELUMAB [Suspect]
     Active Substance: AVELUMAB
     Indication: GASTROINTESTINAL CARCINOMA
     Route: 042
     Dates: start: 20210309

REACTIONS (1)
  - Immune-mediated adverse reaction [Recovered/Resolved]

NARRATIVE: CASE EVENT DATE: 20210406
